FAERS Safety Report 11546413 (Version 2)
Quarter: 2015Q3

REPORT INFORMATION
  Report Type: Spontaneous
  Country: AT (occurrence: AT)
  Receive Date: 20150924
  Receipt Date: 20150928
  Transmission Date: 20151125
  Serious: Yes (Death, Hospitalization)
  Sender: FDA-Public Use
  Company Number: AT-ROCHE-1637858

PATIENT
  Age: 74 Year
  Sex: Female
  Weight: 55 kg

DRUGS (7)
  1. MIRTABENE [Concomitant]
     Active Substance: MIRTAZAPINE
     Dosage: 1-0-0-0
     Route: 065
  2. XANOR [Concomitant]
     Active Substance: ALPRAZOLAM
     Dosage: 0,5 - 0 - 0 - 1
     Route: 065
  3. EUTHYROX [Concomitant]
     Active Substance: LEVOTHYROXINE SODIUM
     Dosage: 1-0-0-0
     Route: 065
  4. ZANTAC [Concomitant]
     Active Substance: RANITIDINE HYDROCHLORIDE
     Dosage: 1-0-0-0
     Route: 065
  5. LOSARTAN. [Concomitant]
     Active Substance: LOSARTAN
     Route: 065
  6. CONCOR [Concomitant]
     Active Substance: BISOPROLOL FUMARATE
     Dosage: 1-0-0-0
     Route: 065
  7. KADCYLA [Suspect]
     Active Substance: ADO-TRASTUZUMAB EMTANSINE
     Indication: HER-2 POSITIVE BREAST CANCER
     Dosage: 3 CYCLES?MOST RECENT DOSE ON 08/SEP/2015
     Route: 042
     Dates: start: 20150627

REACTIONS (2)
  - Seizure [Fatal]
  - Coma [Fatal]

NARRATIVE: CASE EVENT DATE: 20150919
